FAERS Safety Report 18382578 (Version 1)
Quarter: 2020Q4

REPORT INFORMATION
  Report Type: Spontaneous
  Country: US (occurrence: US)
  Receive Date: 20201014
  Receipt Date: 20201014
  Transmission Date: 20210114
  Serious: No
  Sender: FDA-Public Use
  Company Number: US-ALLERGAN-2032414US

PATIENT
  Age: 59 Year
  Sex: Female

DRUGS (1)
  1. UBRELVY [Suspect]
     Active Substance: UBROGEPANT
     Indication: MIGRAINE
     Dosage: 10 TABLETS A MONTH
     Route: 065

REACTIONS (3)
  - Migraine [Unknown]
  - Feeling abnormal [Unknown]
  - Drug ineffective [Unknown]
